FAERS Safety Report 13323395 (Version 12)
Quarter: 2017Q3

REPORT INFORMATION
  Report Type: Spontaneous
  Country: IT (occurrence: IT)
  Receive Date: 20170310
  Receipt Date: 20170815
  Transmission Date: 20171127
  Serious: Yes (Life-Threatening, Other)
  Sender: FDA-Public Use
  Company Number: IT-PFIZER INC-2017097850

PATIENT
  Age: 82 Year
  Sex: Female
  Weight: 50 kg

DRUGS (8)
  1. CREON [Concomitant]
     Active Substance: PANCRELIPASE AMYLASE\PANCRELIPASE LIPASE\PANCRELIPASE PROTEASE
     Indication: PANCREATIC CARCINOMA
     Dosage: 3000 DF, UNK, (10,000 U.PH.EUR)
     Route: 048
     Dates: end: 20170224
  2. ALDACTONE [Interacting]
     Active Substance: SPIRONOLACTONE
     Indication: DIURETIC THERAPY
     Dosage: 100 MG, DAILY
     Route: 048
     Dates: end: 20170224
  3. BISOPROLOL [Interacting]
     Active Substance: BISOPROLOL
     Indication: HYPERTENSION
     Dosage: 2.5 MG, DAILY
     Route: 048
     Dates: end: 20170224
  4. LASIX [Interacting]
     Active Substance: FUROSEMIDE
     Indication: DIURETIC THERAPY
     Dosage: 75 MG, UNK
     Route: 048
     Dates: end: 20170224
  5. RAMIPRIL. [Suspect]
     Active Substance: RAMIPRIL
     Indication: HYPERTENSION
     Dosage: 5 MG, DAILY
     Route: 048
     Dates: end: 20170224
  6. BISOPROLOL [Interacting]
     Active Substance: BISOPROLOL
     Dosage: UNK (FILM COATED)
     Route: 048
  7. LASIX [Interacting]
     Active Substance: FUROSEMIDE
     Dosage: UNK
     Route: 048
  8. CITALOPRAM HYDROBROMIDE. [Interacting]
     Active Substance: CITALOPRAM HYDROBROMIDE
     Indication: DEPRESSION
     Dosage: 20 MG, UNK
     Route: 048
     Dates: end: 20170223

REACTIONS (6)
  - Fall [Recovering/Resolving]
  - Hypotension [Recovering/Resolving]
  - Metabolic acidosis [Recovering/Resolving]
  - Drug interaction [Recovered/Resolved]
  - Dyspnoea [Recovering/Resolving]
  - Hyperkalaemia [Recovering/Resolving]

NARRATIVE: CASE EVENT DATE: 20170224
